FAERS Safety Report 9442339 (Version 1)
Quarter: 2013Q3

REPORT INFORMATION
  Report Type: Spontaneous
  Country: US (occurrence: US)
  Receive Date: 20130806
  Receipt Date: 20130806
  Transmission Date: 20140515
  Serious: No
  Sender: FDA-Public Use
  Company Number: US-GLAXOSMITHKLINE-A1007342A

PATIENT
  Sex: Male

DRUGS (1)
  1. ADVAIR [Suspect]
     Indication: ASTHMA
     Dosage: 2PUFF TWICE PER DAY
     Route: 055
     Dates: start: 201207

REACTIONS (3)
  - Oral lichen planus [Unknown]
  - Tooth resorption [Unknown]
  - Drug ineffective [Unknown]
